FAERS Safety Report 14378271 (Version 1)
Quarter: 2018Q1

REPORT INFORMATION
  Report Type: Spontaneous
  Country: US (occurrence: US)
  Receive Date: 20180111
  Receipt Date: 20180111
  Transmission Date: 20180509
  Serious: Yes (Hospitalization)
  Sender: FDA-Public Use
  Company Number: US-VIFOR (INTERNATIONAL) INC.-VIT-2018-00141

PATIENT
  Sex: Female

DRUGS (13)
  1. ALPRAZOLAM. [Concomitant]
     Active Substance: ALPRAZOLAM
  2. BISAC-EVAC [Concomitant]
     Active Substance: BISACODYL
  3. CARVEDILOL. [Concomitant]
     Active Substance: CARVEDILOL
  4. LIOTHYRONINE SODIUM. [Concomitant]
     Active Substance: LIOTHYRONINE SODIUM
  5. CALCIUM ACETATE. [Concomitant]
     Active Substance: CALCIUM ACETATE
  6. NEPHRO-VITE RX [Concomitant]
  7. MYCOPHENOLATE MOFETIL. [Concomitant]
     Active Substance: MYCOPHENOLATE MOFETIL
  8. FUROSEMIDE. [Concomitant]
     Active Substance: FUROSEMIDE
  9. DOXAZOSIN MESILATE [Concomitant]
     Active Substance: DOXAZOSIN MESYLATE
  10. LORATADINE. [Concomitant]
     Active Substance: LORATADINE
  11. HUMALOG [Concomitant]
     Active Substance: INSULIN LISPRO
  12. VELTASSA [Suspect]
     Active Substance: PATIROMER
     Indication: HYPERKALAEMIA
     Route: 065
  13. GABAPENTIN. [Concomitant]
     Active Substance: GABAPENTIN

REACTIONS (3)
  - Weight increased [Unknown]
  - Hyperkalaemia [Unknown]
  - Chronic kidney disease [Unknown]
